FAERS Safety Report 5576106-0 (Version None)
Quarter: 2007Q4

REPORT INFORMATION
  Report Type: 
  Country: None (occurrence: None)
  Receive Date: 20071228
  Receipt Date: 20071221
  Transmission Date: 20080405
  Serious: Yes (Hospitalization, Other)
  Sender: FDA-Public Use
  Company Number: JP-NOVOPROD-270193

PATIENT
  Sex: Female

DRUGS (2)
  1. NOVORAPID CHU FLEXPEN [Suspect]
     Indication: TYPE 1 DIABETES MELLITUS
     Dosage: 14+27+14
     Route: 058
     Dates: start: 20040901
  2. LANTUS [Suspect]
     Dosage: 81 IU, QD
     Route: 058

REACTIONS (1)
  - HEPATIC FUNCTION ABNORMAL [None]
